FAERS Safety Report 6385229-8 (Version None)
Quarter: 2009Q4

REPORT INFORMATION
  Report Type: 
  Country: None (occurrence: None)
  Receive Date: 20091002
  Receipt Date: 20080818
  Transmission Date: 20100525
  Serious: No
  Sender: FDA-Public Use
  Company Number: US-ASTRAZENECA-2008UW14625

PATIENT
  Age: 71 Year
  Sex: Female

DRUGS (2)
  1. ARIMIDEX [Suspect]
     Route: 048
     Dates: start: 20080709
  2. ZOMETA [Concomitant]
     Dates: start: 20080701

REACTIONS (15)
  - ALOPECIA [None]
  - COUGH [None]
  - DECREASED APPETITE [None]
  - DRY MOUTH [None]
  - DRY SKIN [None]
  - DYSGEUSIA [None]
  - FATIGUE [None]
  - FEELING JITTERY [None]
  - FREQUENT BOWEL MOVEMENTS [None]
  - INSOMNIA [None]
  - MUSCLE SPASMS [None]
  - PAIN [None]
  - PAIN IN JAW [None]
  - PRURITUS [None]
  - VISUAL IMPAIRMENT [None]
